FAERS Safety Report 13950951 (Version 1)
Quarter: 2017Q3

REPORT INFORMATION
  Report Type: Spontaneous
  Country: US (occurrence: US)
  Receive Date: 20170908
  Receipt Date: 20170908
  Transmission Date: 20171128
  Serious: Yes (Other)
  Sender: FDA-Public Use
  Company Number: US-ROCHE-1131107

PATIENT
  Sex: Male

DRUGS (7)
  1. RITUXAN [Suspect]
     Active Substance: RITUXIMAB
     Route: 042
     Dates: start: 20000508
  2. CYTOXAN [Concomitant]
     Active Substance: CYCLOPHOSPHAMIDE
  3. RITUXAN [Suspect]
     Active Substance: RITUXIMAB
     Indication: PROLYMPHOCYTIC LEUKAEMIA
     Route: 065
     Dates: start: 199905
  4. RITUXAN [Suspect]
     Active Substance: RITUXIMAB
     Route: 042
     Dates: start: 20000522
  5. FLUDARA [Concomitant]
     Active Substance: FLUDARABINE PHOSPHATE
  6. RITUXAN [Suspect]
     Active Substance: RITUXIMAB
     Route: 065
     Dates: start: 20000515
  7. RITUXAN [Suspect]
     Active Substance: RITUXIMAB
     Indication: OFF LABEL USE
     Route: 042
     Dates: start: 20000501

REACTIONS (6)
  - Back pain [Unknown]
  - Angina pectoris [Unknown]
  - Headache [Unknown]
  - Full blood count decreased [Unknown]
  - Malaise [Unknown]
  - Dyspnoea [Unknown]
